FAERS Safety Report 17938414 (Version 2)
Quarter: 2020Q3

REPORT INFORMATION
  Report Type: Spontaneous
  Country: US (occurrence: US)
  Receive Date: 20200624
  Receipt Date: 20200929
  Transmission Date: 20201103
  Serious: Yes (Other)
  Sender: FDA-Public Use
  Company Number: US-BAYER-2020-126752

PATIENT
  Age: 32 Year
  Sex: Female
  Weight: 83.6 kg

DRUGS (7)
  1. ASCORBIC ACID. [Concomitant]
     Active Substance: ASCORBIC ACID
  2. MIRENA [Suspect]
     Active Substance: LEVONORGESTREL
     Indication: CONTRACEPTION
     Dosage: 20?G PER DAY, CONTINUOUSLY
     Route: 015
  3. VITAMIN D [VITAMIN D NOS] [Concomitant]
     Active Substance: VITAMIN D NOS
  4. IBUPROFEN. [Concomitant]
     Active Substance: IBUPROFEN
  5. MIRENA [Suspect]
     Active Substance: LEVONORGESTREL
     Indication: CONTRACEPTION
     Dosage: 20 ?G PER DAY CONTINUOUSLY
     Route: 015
     Dates: start: 20200508, end: 20200616
  6. TYLENOL [Concomitant]
     Active Substance: ACETAMINOPHEN
  7. CYCLOBENZAPRIN [Concomitant]
     Active Substance: CYCLOBENZAPRINE
     Indication: CONTRACEPTION

REACTIONS (12)
  - Embedded device [Not Recovered/Not Resolved]
  - Pyrexia [Recovered/Resolved]
  - Ovarian enlargement [None]
  - Device use issue [None]
  - Back pain [Recovered/Resolved]
  - Muscle spasms [None]
  - Device dislocation [Recovered/Resolved]
  - Pain [Recovered/Resolved]
  - Musculoskeletal stiffness [None]
  - Vaginal haemorrhage [Recovered/Resolved]
  - Abdominal pain lower [Recovered/Resolved]
  - Amenorrhoea [None]

NARRATIVE: CASE EVENT DATE: 20200616
